FAERS Safety Report 24729467 (Version 1)
Quarter: 2024Q4

REPORT INFORMATION
  Report Type: Spontaneous
  Country: US (occurrence: US)
  Receive Date: 20241213
  Receipt Date: 20241213
  Transmission Date: 20250115
  Serious: No
  Sender: ACCORD
  Company Number: US-Accord-437514

PATIENT
  Age: 61 Year
  Sex: Female

DRUGS (2)
  1. LEVOTHYROXINE SODIUM [Suspect]
     Active Substance: LEVOTHYROXINE SODIUM
     Indication: Thyroid disorder
     Dosage: STRENGTH: 100 MCG, IN DEC-2023/JAN-2024
  2. LOSARTAN [Concomitant]
     Active Substance: LOSARTAN
     Dosage: ONE 0.25 MG

REACTIONS (13)
  - Pain [Recovering/Resolving]
  - Muscle spasms [Unknown]
  - Abdominal discomfort [Unknown]
  - Diarrhoea [Unknown]
  - Fatigue [Unknown]
  - Depression [Unknown]
  - Feeling abnormal [Unknown]
  - Blood thyroid stimulating hormone increased [Unknown]
  - Illness [Unknown]
  - Asthenia [Unknown]
  - Condition aggravated [Unknown]
  - Muscular weakness [Not Recovered/Not Resolved]
  - Product substitution issue [Unknown]
